FAERS Safety Report 7150769-0 (Version None)
Quarter: 2010Q4

REPORT INFORMATION
  Report Type: 
  Country: None (occurrence: None)
  Receive Date: 20101124
  Receipt Date: 20101109
  Transmission Date: 20110411
  Serious: Yes (Other)
  Sender: FDA-Public Use
  Company Number: 1000017386

PATIENT
  Age: 60 Year
  Sex: Female

DRUGS (2)
  1. ESCITALOPRAM [Suspect]
  2. LEVOTHYROX (LEVOTHYROXINE SODIUM) [Concomitant]

REACTIONS (1)
  - ANGLE CLOSURE GLAUCOMA [None]
